FAERS Safety Report 25350544 (Version 1)
Quarter: 2025Q2

REPORT INFORMATION
  Report Type: Spontaneous
  Country: FR (occurrence: FR)
  Receive Date: 20250523
  Receipt Date: 20250523
  Transmission Date: 20250716
  Serious: Yes (Other)
  Sender: SANDOZ
  Company Number: None

PATIENT
  Age: 85 Year
  Sex: Female

DRUGS (15)
  1. DIPRIVAN [Suspect]
     Active Substance: PROPOFOL
     Indication: General anaesthesia
     Route: 042
     Dates: start: 20210922, end: 20210922
  2. CEFAZOLIN SODIUM [Suspect]
     Active Substance: CEFAZOLIN SODIUM
     Indication: Prophylaxis
     Route: 042
     Dates: start: 20210922, end: 20210922
  3. EPHEDRINE HYDROCHLORIDE [Suspect]
     Active Substance: EPHEDRINE HYDROCHLORIDE
     Route: 042
     Dates: start: 20210922, end: 20210922
  4. EPHEDRINE HYDROCHLORIDE [Suspect]
     Active Substance: EPHEDRINE HYDROCHLORIDE
     Indication: Blood pressure management
     Route: 042
     Dates: start: 20210922, end: 20210922
  5. HYDROXYZINE HYDROCHLORIDE [Suspect]
     Active Substance: HYDROXYZINE HYDROCHLORIDE
     Indication: Product used for unknown indication
     Dosage: 25 MILLIGRAM, QD
     Route: 048
     Dates: start: 20210922, end: 20210927
  6. KETAMINE [Suspect]
     Active Substance: KETAMINE
     Route: 042
     Dates: start: 20210922, end: 20210922
  7. KETAMINE [Suspect]
     Active Substance: KETAMINE
     Indication: General anaesthesia
     Route: 042
     Dates: start: 20210922, end: 20210922
  8. LEVOFLOXACIN [Suspect]
     Active Substance: LEVOFLOXACIN
     Indication: Prophylaxis
     Route: 058
     Dates: start: 20210919, end: 20210923
  9. ROPIVACAINE HYDROCHLORIDE [Suspect]
     Active Substance: ROPIVACAINE HYDROCHLORIDE
     Indication: Anaesthesia
     Route: 050
     Dates: start: 20210922, end: 20210922
  10. NIMBEX [Suspect]
     Active Substance: CISATRACURIUM BESYLATE
     Indication: Neuromuscular blocking therapy
     Route: 042
     Dates: start: 20210922, end: 20210922
  11. NEFOPAM [Suspect]
     Active Substance: NEFOPAM
     Indication: Gait disturbance
     Route: 048
     Dates: start: 20210919, end: 20210922
  12. NIMBEX [Suspect]
     Active Substance: CISATRACURIUM BESYLATE
     Indication: Neuromuscular blocking therapy
     Route: 042
     Dates: start: 20210922, end: 20210922
  13. OXYCODONE HYDROCHLORIDE [Suspect]
     Active Substance: OXYCODONE HYDROCHLORIDE
     Indication: Gait disturbance
     Route: 065
     Dates: start: 20210922, end: 20210924
  14. SUFENTANIL [Suspect]
     Active Substance: SUFENTANIL
     Indication: Analgesic therapy
     Route: 042
     Dates: start: 20210922, end: 20210922
  15. VENOFER [Suspect]
     Active Substance: IRON SUCROSE
     Indication: Anaemia
     Route: 042
     Dates: start: 20210923, end: 20210925

REACTIONS (1)
  - Mixed liver injury [Recovering/Resolving]

NARRATIVE: CASE EVENT DATE: 20210929
